FAERS Safety Report 13704948 (Version 1)
Quarter: 2017Q2

REPORT INFORMATION
  Report Type: Spontaneous
  Country: US (occurrence: US)
  Receive Date: 20170629
  Receipt Date: 20170629
  Transmission Date: 20170830
  Serious: Yes (Other)
  Sender: FDA-Public Use
  Company Number: None

PATIENT
  Age: 66 Year
  Sex: Male
  Weight: 83.8 kg

DRUGS (3)
  1. ADT [Concomitant]
  2. LUPRON [Suspect]
     Active Substance: LEUPROLIDE ACETATE
     Indication: PROSTATE CANCER
     Dosage: ?          OTHER DOSE:MG;OTHER FREQUENCY:ONCE;?
     Route: 030
     Dates: start: 20170223
  3. EBRT [Concomitant]

REACTIONS (2)
  - Arthralgia [None]
  - Rheumatoid arthritis [None]

NARRATIVE: CASE EVENT DATE: 20170223
